FAERS Safety Report 6483571-3 (Version None)
Quarter: 2009Q4

REPORT INFORMATION
  Report Type: 
  Country: None (occurrence: None)
  Receive Date: 20091209
  Receipt Date: 20091208
  Transmission Date: 20100525
  Serious: Yes (Other)
  Sender: FDA-Public Use
  Company Number: US-ROXANE LABORATORIES, INC.-2009-RO-01239RO

PATIENT
  Sex: Male

DRUGS (3)
  1. PREDNISONE [Suspect]
     Indication: RENAL TRANSPLANT
     Dates: start: 20060616
  2. MYCOPHENOLATE MOFETIL [Suspect]
     Indication: RENAL TRANSPLANT
     Dates: start: 20060616
  3. BELATACEPT [Suspect]
     Indication: RENAL TRANSPLANT
     Dates: start: 20060616

REACTIONS (1)
  - SQUAMOUS CELL CARCINOMA OF SKIN [None]
